FAERS Safety Report 6270105-1 (Version None)
Quarter: 2009Q3

REPORT INFORMATION
  Report Type: 
  Country: None (occurrence: None)
  Receive Date: 20090714
  Receipt Date: 20090702
  Transmission Date: 20100115
  Serious: Yes (Other)
  Sender: FDA-Public Use
  Company Number: 1-19041656

PATIENT
  Sex: Male

DRUGS (6)
  1. AMIODARONE HCL [Suspect]
     Indication: SINUS ARRHYTHMIA
     Dosage: 200 MG, DAILY, ORAL
     Route: 048
     Dates: start: 20020701
  2. PREDNISOLONE [Concomitant]
  3. CYCLOSPORINE [Concomitant]
  4. RECOMBINANT HUMAN ERYTHROPOIETIN [Concomitant]
  5. UNSPECIFIED DIURETIC [Concomitant]
  6. UNSPECIFIED ANGIOTENSIN-CONVERTING ENZYME INHIBITOR [Concomitant]

REACTIONS (5)
  - ECONOMIC PROBLEM [None]
  - HAEMOGLOBIN DECREASED [None]
  - HAEMOLYSIS [None]
  - INFLAMMATION [None]
  - IRON DEFICIENCY [None]
